FAERS Safety Report 20767966 (Version 1)
Quarter: 2022Q2

REPORT INFORMATION
  Report Type: Spontaneous
  Country: NL (occurrence: NL)
  Receive Date: 20220429
  Receipt Date: 20220429
  Transmission Date: 20220721
  Serious: Yes (Other)
  Sender: FDA-Public Use
  Company Number: NL-BRISTOL-MYERS SQUIBB COMPANY-2022-017798

PATIENT

DRUGS (14)
  1. DEXAMETHASONE [Suspect]
     Active Substance: DEXAMETHASONE
     Indication: Product used for unknown indication
     Dosage: 2 TIMES PER WEEK
     Route: 048
     Dates: start: 20191211, end: 20200107
  2. DEXAMETHASONE [Suspect]
     Active Substance: DEXAMETHASONE
     Dosage: 20 MG, 1 DOSE 2 WEEKS
     Route: 048
     Dates: start: 20191113, end: 20191210
  3. DEXAMETHASONE [Suspect]
     Active Substance: DEXAMETHASONE
     Dosage: 20 MG, 1 DOSE 2 WEEKS
     Route: 048
     Dates: start: 20191016, end: 20191112
  4. DEXAMETHASONE [Suspect]
     Active Substance: DEXAMETHASONE
     Dosage: 2 TIMES PER WEEK
     Route: 048
     Dates: start: 20190918, end: 20191015
  5. REVLIMID [Suspect]
     Active Substance: LENALIDOMIDE
     Indication: Product used for unknown indication
     Dosage: 15 MG, QD
     Route: 048
     Dates: start: 20191211, end: 20191231
  6. REVLIMID [Suspect]
     Active Substance: LENALIDOMIDE
     Dosage: REST PERIOD
     Route: 048
     Dates: start: 20200101, end: 20200107
  7. REVLIMID [Suspect]
     Active Substance: LENALIDOMIDE
     Dosage: REST PERIOD
     Route: 048
     Dates: start: 20191106, end: 20191112
  8. REVLIMID [Suspect]
     Active Substance: LENALIDOMIDE
     Dosage: 15 MG, QD
     Route: 048
     Dates: start: 20191016, end: 20191105
  9. REVLIMID [Suspect]
     Active Substance: LENALIDOMIDE
     Dosage: 15 MG, QD
     Route: 048
     Dates: start: 20191113, end: 20191203
  10. REVLIMID [Suspect]
     Active Substance: LENALIDOMIDE
     Dosage: REST PERIOD
     Route: 048
     Dates: start: 20191009, end: 20191015
  11. REVLIMID [Suspect]
     Active Substance: LENALIDOMIDE
     Dosage: REST PERIOD
     Route: 048
     Dates: start: 20191204, end: 20191210
  12. REVLIMID [Suspect]
     Active Substance: LENALIDOMIDE
     Dosage: 15 MG, QD
     Route: 048
     Dates: start: 20190918, end: 20191008
  13. REVLIMID [Suspect]
     Active Substance: LENALIDOMIDE
     Dosage: 10 MG, QD
     Route: 048
     Dates: start: 20210325, end: 20210901
  14. REVLIMID [Suspect]
     Active Substance: LENALIDOMIDE
     Dosage: 20 MG, 1 DOSE 2 WEEKS
     Route: 048
     Dates: start: 20191211, end: 20200107

REACTIONS (1)
  - Polyneuropathy [Not Recovered/Not Resolved]

NARRATIVE: CASE EVENT DATE: 20220325
